FAERS Safety Report 8594474-2 (Version None)
Quarter: 2012Q3

REPORT INFORMATION
  Report Type: 
  Country: None (occurrence: None)
  Receive Date: 20120801
  Receipt Date: 20120719
  Transmission Date: 20120928
  Serious: Yes (Hospitalization)
  Sender: FDA-Public Use
  Company Number: USA/USA/12/0025232

PATIENT
  Age: 61 Year
  Sex: Male

DRUGS (2)
  1. CARBIDOPA AND LEVODOPA [Suspect]
     Indication: PARKINSON'S DISEASE
     Dosage: FOR SEVERAL YEARS
  2. MINOCYCLINE HYDROCHLORIDE [Suspect]
     Indication: ACNE
     Dosage: 100 MG, 2 IN 1 D, ORAL; FOR SEVERAL YEARS
     Route: 048

REACTIONS (8)
  - DYSPNOEA [None]
  - FATIGUE [None]
  - DEHYDRATION [None]
  - ASTHENIA [None]
  - FALL [None]
  - PIGMENTATION DISORDER [None]
  - BLOOD PRESSURE SYSTOLIC INCREASED [None]
  - SKIN DISCOLOURATION [None]
